FAERS Safety Report 6895013-4 (Version None)
Quarter: 2010Q3

REPORT INFORMATION
  Report Type: 
  Country: None (occurrence: None)
  Receive Date: 20100730
  Receipt Date: 20100730
  Transmission Date: 20110219
  Serious: No
  Sender: FDA-Public Use
  Company Number: None

PATIENT
  Sex: Female
  Weight: 63.5036 kg

DRUGS (3)
  1. EFFEXOR [Suspect]
     Indication: DEPRESSION
     Dosage: 300 MG PER DAY
     Dates: start: 20080101, end: 20100101
  2. AVALIDE [Concomitant]
  3. METOPROLOL TARTR [Concomitant]

REACTIONS (1)
  - HYPERHIDROSIS [None]
